FAERS Safety Report 8080489 (Version 3)
Quarter: 2013Q1

REPORT INFORMATION
  Report Type: Spontaneous
  Country: SG (occurrence: None)
  Receive Date: 20110728
  Receipt Date: 20130214
  Transmission Date: 20140127
  Serious: Yes (Death, Hospitalization)
  Sender: FDA-Public Use
  Company Number: 987393

PATIENT
  Age: 64 Year
  Sex: Male
  Weight: 73.8 kg

DRUGS (8)
  1. OXALIPLATIN [Suspect]
     Indication: COLON CANCER RECURRENT
     Dosage: 188 MG, 2 WEEKLY, INTRAVENOUS (NOT OTHERWISE SPECIFIED)
     Route: 042
     Dates: start: 20110712, end: 20110712
  2. KYTRIL [Concomitant]
  3. DEXAMETHASONE [Concomitant]
  4. BENADRYL [Concomitant]
  5. ZANTAC [Concomitant]
  6. MAXOLON [Concomitant]
  7. CALCIUM GLUCONATE [Concomitant]
  8. MAGNESIUM SULFATE [Concomitant]

REACTIONS (1)
  - Anaphylactic shock [None]
